FAERS Safety Report 8901123 (Version 2)
Quarter: 2012Q4

REPORT INFORMATION
  Report Type: Report from Study
  Country: US (occurrence: US)
  Receive Date: 20121109
  Receipt Date: 20121116
  Transmission Date: 20130627
  Serious: Yes (Hospitalization)
  Sender: FDA-Public Use
  Company Number: US-ROCHE-CID000000002222243

PATIENT
  Age: 53 Year
  Sex: Female
  Weight: 73.55 kg

DRUGS (10)
  1. TRASTUZUMAB [Suspect]
     Indication: BREAST CANCER METASTATIC
     Route: 065
  2. NAVELBINE [Suspect]
     Indication: BREAST CANCER METASTATIC
     Route: 065
  3. ALPRAZOLAM [Concomitant]
     Route: 065
     Dates: start: 20120418
  4. COLACE [Concomitant]
     Route: 065
     Dates: start: 20120418
  5. MS CONTIN [Concomitant]
     Route: 065
  6. MSIR [Concomitant]
     Route: 065
     Dates: start: 20120626
  7. OMEPRAZOLE [Concomitant]
     Route: 065
     Dates: start: 20120418
  8. ONDANSETRON [Concomitant]
  9. POLYETHYLENE GLYCOL 3350, NF POWDER [Concomitant]
     Route: 065
     Dates: start: 20120418
  10. SENNA [Concomitant]
     Route: 065
     Dates: start: 20120418

REACTIONS (1)
  - Dehydration [Recovered/Resolved]
